FAERS Safety Report 10649009 (Version 1)
Quarter: 2014Q4

REPORT INFORMATION
  Report Type: Not Available
  Country: CH (occurrence: CH)
  Receive Date: 20141212
  Receipt Date: 20141212
  Transmission Date: 20150529
  Serious: Yes (Hospitalization)
  Sender: FDA-Public Use
  Company Number: CH-NAPPMUNDI-DEU-2014-0015881

PATIENT
  Age: 47 Year
  Sex: Female
  Weight: 82 kg

DRUGS (5)
  1. SEVRE-LONG KAPSELN RETARD [Suspect]
     Active Substance: MORPHINE
     Dosage: 260 MG, DAILY
     Route: 048
  2. DORMICUM                           /00634101/ [Concomitant]
     Dosage: 30 MG, DAILY
     Route: 048
  3. SEVRE-LONG KAPSELN RETARD [Suspect]
     Active Substance: MORPHINE
     Dosage: 290 MG, DAILY
     Route: 048
     Dates: start: 20140826
  4. XANAX [Concomitant]
     Active Substance: ALPRAZOLAM
     Dosage: 14 MG, DAILY
     Route: 048
  5. SEVRE-LONG KAPSELN RETARD [Suspect]
     Active Substance: MORPHINE
     Indication: POLYSUBSTANCE DEPENDENCE
     Dosage: 290 MG, DAILY
     Route: 048
     Dates: end: 20141031

REACTIONS (2)
  - Psychotic disorder [Recovering/Resolving]
  - Aggression [Recovering/Resolving]

NARRATIVE: CASE EVENT DATE: 201410
